FAERS Safety Report 14305199 (Version 1)
Quarter: 2017Q4

REPORT INFORMATION
  Report Type: Spontaneous
  Country: JP (occurrence: JP)
  Receive Date: 20171219
  Receipt Date: 20171219
  Transmission Date: 20180321
  Serious: Yes (Other)
  Sender: FDA-Public Use
  Company Number: JP-OTSUKA-JP-2013-11435

PATIENT
  Age: 29 Year
  Sex: Male

DRUGS (7)
  1. WYPAX [Concomitant]
     Active Substance: LORAZEPAM
     Indication: ANXIETY
  2. ABILIFY [Suspect]
     Active Substance: ARIPIPRAZOLE
     Indication: ANXIETY
     Dosage: 3 MG, QD
     Route: 048
     Dates: start: 20130502, end: 20130502
  3. LANDSEN [Concomitant]
     Active Substance: CLONAZEPAM
     Indication: IRRITABILITY
  4. WYPAX [Concomitant]
     Active Substance: LORAZEPAM
     Indication: IRRITABILITY
  5. LANDSEN [Concomitant]
     Active Substance: CLONAZEPAM
     Indication: AUTISM SPECTRUM DISORDER
     Dosage: UNK
     Route: 048
  6. LANDSEN [Concomitant]
     Active Substance: CLONAZEPAM
     Indication: ANXIETY
  7. WYPAX [Concomitant]
     Active Substance: LORAZEPAM
     Indication: AUTISM SPECTRUM DISORDER
     Dosage: UNK
     Route: 048

REACTIONS (3)
  - Eczema [Recovered/Resolved]
  - Feeling hot [Unknown]
  - Urticaria [Recovered/Resolved]

NARRATIVE: CASE EVENT DATE: 20130502
